FAERS Safety Report 9217089 (Version 1)
Quarter: 2013Q2

REPORT INFORMATION
  Report Type: Spontaneous
  Country: CN (occurrence: None)
  Receive Date: 20130404
  Receipt Date: 20130404
  Transmission Date: 20140414
  Serious: Yes (Hospitalization)
  Sender: FDA-Public Use
  Company Number: VAL_02266_2013

PATIENT
  Age: 90 Year
  Sex: Female

DRUGS (1)
  1. ROCALTROL (ROCALTROL-CALCITRIOL) NOT SPECIFIED [Suspect]
     Indication: OSTEOPOROSIS
     Route: 048
     Dates: start: 2002

REACTIONS (6)
  - Nasopharyngitis [None]
  - Cough [None]
  - Cerebrovascular accident [None]
  - Pleural effusion [None]
  - Dysphagia [None]
  - Urinary retention [None]
